FAERS Safety Report 8133802 (Version 3)
Quarter: 2013Q3

REPORT INFORMATION
  Report Type: Report from Study
  Country: FR (occurrence: FR)
  Receive Date: 20110913
  Receipt Date: 20130923
  Transmission Date: 20140515
  Serious: Yes (Death, Other)
  Sender: FDA-Public Use
  Company Number: FR-ALEXION PHARMACEUTICALS INC.-A201101354

PATIENT
  Age: 2 Year
  Sex: Female

DRUGS (2)
  1. SOLIRIS [Suspect]
     Indication: HAEMOLYTIC URAEMIC SYNDROME
     Dosage: 600 MG, UNK
     Route: 042
     Dates: start: 20110827, end: 20110902
  2. SOLIRIS [Suspect]
     Indication: OFF LABEL USE
     Dosage: UNK
     Route: 042
     Dates: start: 20110827, end: 20110827

REACTIONS (3)
  - Myocarditis [Fatal]
  - Thrombotic microangiopathy [Fatal]
  - Central nervous system lesion [Unknown]
